FAERS Safety Report 4448885-7 (Version None)
Quarter: 2004Q3

REPORT INFORMATION
  Report Type: 
  Country: None (occurrence: None)
  Receive Date: 20040909
  Receipt Date: 20040827
  Transmission Date: 20050211
  Serious: Yes (Hospitalization)
  Sender: FDA-Public Use
  Company Number: MET-US-04-00008

PATIENT
  Sex: Male
  Weight: 90.7194 kg

DRUGS (1)
  1. FORTAMET [Suspect]
     Indication: HYPERGLYCAEMIA
     Dosage: 2000 MG PO QD
     Route: 048

REACTIONS (3)
  - DEHYDRATION [None]
  - LACTIC ACIDOSIS [None]
  - LOSS OF CONSCIOUSNESS [None]
